FAERS Safety Report 14571118 (Version 1)
Quarter: 2018Q1

REPORT INFORMATION
  Report Type: Spontaneous
  Country: US (occurrence: US)
  Receive Date: 20180226
  Receipt Date: 20180226
  Transmission Date: 20180509
  Serious: No
  Sender: FDA-Public Use
  Company Number: US-JNJFOC-20180205514

PATIENT
  Age: 53 Year
  Sex: Female
  Weight: 95.26 kg

DRUGS (2)
  1. TYLENOL EXTRA STRENGTH [Suspect]
     Active Substance: ACETAMINOPHEN
     Indication: ANALGESIC THERAPY
     Dosage: 2 CAPLETS ABOUT 4 TIMES OVER THE PAST??WEEK
     Route: 048
     Dates: end: 20180201
  2. TYLENOL EXTRA STRENGTH [Suspect]
     Active Substance: ACETAMINOPHEN
     Indication: HEADACHE
     Dosage: 2 CAPLETS ABOUT 4 TIMES OVER THE PAST??WEEK
     Route: 048
     Dates: end: 20180201

REACTIONS (1)
  - Drug ineffective [Unknown]
